FAERS Safety Report 22384113 (Version 1)
Quarter: 2023Q2

REPORT INFORMATION
  Report Type: Spontaneous
  Country: US (occurrence: US)
  Receive Date: 20230530
  Receipt Date: 20230530
  Transmission Date: 20230721
  Serious: No
  Sender: FDA-Public Use
  Company Number: US-PERRIGO-23US003144

PATIENT
  Sex: Female
  Weight: 88.435 kg

DRUGS (20)
  1. MINOXIDIL [Suspect]
     Active Substance: MINOXIDIL
     Indication: Alopecia
     Dosage: UNKNOWN, BID
     Route: 061
     Dates: start: 2019, end: 2019
  2. OXYCODONE [Concomitant]
     Active Substance: OXYCODONE
     Indication: Back pain
     Dosage: UNKNOWN, PRN
     Route: 065
     Dates: start: 2019
  3. OXYCODONE [Concomitant]
     Active Substance: OXYCODONE
     Indication: Back disorder
  4. OXYCODONE [Concomitant]
     Active Substance: OXYCODONE
     Indication: Spinal operation
  5. ASPIRIN [Concomitant]
     Active Substance: ASPIRIN
     Indication: Supplementation therapy
     Dosage: UNKNOWN, QOD
     Route: 065
     Dates: start: 2013
  6. MELATONIN [Concomitant]
     Active Substance: MELATONIN
     Indication: Insomnia
     Dosage: UNKNOWN, UNKNOWN
     Route: 065
     Dates: start: 2013
  7. AMBIEN [Concomitant]
     Active Substance: ZOLPIDEM TARTRATE
     Indication: Insomnia
     Dosage: UNKNOWN,UNKNOWN
     Route: 065
     Dates: start: 2013
  8. ROSUVASTATIN [Concomitant]
     Active Substance: ROSUVASTATIN
     Indication: Blood cholesterol increased
     Dosage: UNKNOWN, UNKNOWN
     Route: 065
     Dates: start: 2013
  9. CORTISONE [Concomitant]
     Active Substance: CORTISONE
     Indication: Back disorder
     Dosage: UNKNOWN, UNKNOWN
     Route: 065
     Dates: start: 2011
  10. CORTISONE [Concomitant]
     Active Substance: CORTISONE
     Indication: Spinal operation
  11. DIOVAN HCT [Concomitant]
     Active Substance: HYDROCHLOROTHIAZIDE\VALSARTAN
     Indication: Hypertension
     Dosage: UNKNOWN, UNKNOWN
     Route: 065
     Dates: start: 2003
  12. CALCIUM [Concomitant]
     Active Substance: CALCIUM
     Indication: Osteoporosis
     Dosage: UNKNOWN, UNKNOWN
     Route: 065
     Dates: start: 2003
  13. VITAMIN D3 [Concomitant]
     Active Substance: CHOLECALCIFEROL
     Indication: Osteoporosis
     Dosage: UNKNOWN, UNKNOWN
     Route: 065
     Dates: start: 2003
  14. FISH OIL [Concomitant]
     Active Substance: FISH OIL
     Indication: Hypertension
     Dosage: UNKNOWN, UNKNOWN
     Route: 065
     Dates: start: 2003
  15. FISH OIL [Concomitant]
     Active Substance: FISH OIL
     Indication: Antioxidant therapy
  16. COENZYME Q10 [Concomitant]
     Active Substance: DIETARY SUPPLEMENT\UBIDECARENONE
     Indication: Supplementation therapy
     Dosage: UNKNOWN, UNKNOWN
     Route: 065
     Dates: start: 2003
  17. LEVOTHYROXINE [Concomitant]
     Active Substance: LEVOTHYROXINE
     Indication: Hypothyroidism
     Dosage: UNKNOWN, UNKNOWN
     Route: 065
     Dates: start: 1993
  18. CENTRUM GENDER +50 [Concomitant]
     Indication: Supplementation therapy
     Dosage: UNKNOWN, UNKNOWN
     Route: 065
     Dates: start: 1983
  19. VITAMIN C [Concomitant]
     Active Substance: ASCORBIC ACID
     Indication: Supplementation therapy
     Dosage: UNKNOWN, UNKNOWN
     Route: 065
     Dates: start: 1973
  20. VITAMIN C [Concomitant]
     Active Substance: ASCORBIC ACID
     Indication: Antioxidant therapy

REACTIONS (2)
  - Inappropriate schedule of product administration [Unknown]
  - Off label use [Unknown]

NARRATIVE: CASE EVENT DATE: 20190101
